FAERS Safety Report 23957207 (Version 2)
Quarter: 2024Q3

REPORT INFORMATION
  Report Type: Spontaneous
  Country: US (occurrence: US)
  Receive Date: 20240610
  Receipt Date: 20240702
  Transmission Date: 20241017
  Serious: Yes (Hospitalization)
  Sender: SANOFI AVENTIS
  Company Number: US-SA-SAC20240606000389

PATIENT
  Age: 54 Year
  Sex: Female

DRUGS (4)
  1. DUPIXENT [Suspect]
     Active Substance: DUPILUMAB
     Indication: Asthma
     Dosage: 300 MG, QOW
     Route: 058
     Dates: start: 20200610
  2. FARXIGA [Concomitant]
     Active Substance: DAPAGLIFLOZIN PROPANEDIOL
  3. MOTRIN IB [Concomitant]
     Active Substance: IBUPROFEN
  4. ROSUVASTATIN [Concomitant]
     Active Substance: ROSUVASTATIN

REACTIONS (2)
  - Cholecystectomy [Unknown]
  - Impaired quality of life [Unknown]

NARRATIVE: CASE EVENT DATE: 20240401
